FAERS Safety Report 4445915-3 (Version None)
Quarter: 2004Q3

REPORT INFORMATION
  Report Type: 
  Country: None (occurrence: None)
  Receive Date: 20040907
  Receipt Date: 20040824
  Transmission Date: 20050211
  Serious: Yes (Hospitalization)
  Sender: FDA-Public Use
  Company Number: 2004-BP-07204AU

PATIENT
  Age: 43 Year
  Sex: Male

DRUGS (3)
  1. VIRAMUNE [Suspect]
     Dosage: PO
     Route: 048
     Dates: start: 20040117
  2. ZIAGEN [Suspect]
  3. TRIZIVIR [Suspect]
     Indication: HIV INFECTION
     Dosage: PO
     Route: 048
     Dates: start: 20040118, end: 20040123

REACTIONS (5)
  - ARTHRALGIA [None]
  - CHEST PAIN [None]
  - HEADACHE [None]
  - NECK PAIN [None]
  - PRURITUS [None]
